FAERS Safety Report 7442483-9 (Version None)
Quarter: 2011Q2

REPORT INFORMATION
  Report Type: 
  Country: None (occurrence: None)
  Receive Date: 20110428
  Receipt Date: 20110420
  Transmission Date: 20111010
  Serious: Yes (Other)
  Sender: FDA-Public Use
  Company Number: US-ROCHE-773335

PATIENT
  Age: 41 Year
  Sex: Male

DRUGS (3)
  1. METHOTREXATE [Concomitant]
     Dosage: WITHHELD
  2. PREDNISONE [Concomitant]
     Dates: start: 20100401
  3. TOCILIZUMAB [Suspect]
     Dosage: FORM: INFUSION, DOSE: 4MG/KG, WITHHELD
     Route: 065
     Dates: start: 20100301

REACTIONS (4)
  - CYTOMEGALOVIRUS INFECTION [None]
  - PANCYTOPENIA [None]
  - EPSTEIN-BARR VIRAEMIA [None]
  - PNEUMONITIS [None]
